FAERS Safety Report 25659496 (Version 1)
Quarter: 2025Q3

REPORT INFORMATION
  Report Type: Spontaneous
  Country: US (occurrence: US)
  Receive Date: 20250808
  Receipt Date: 20250808
  Transmission Date: 20251021
  Serious: Yes (Other)
  Sender: STALLERGENES
  Company Number: US-STALCOR-2025-AER-02319

PATIENT
  Age: 35 Year
  Sex: Female
  Weight: 83.91 kg

DRUGS (13)
  1. STANDARDIZED GRASS POLLEN, GRASS MIX 7 [Suspect]
     Active Substance: AGROSTIS GIGANTEA POLLEN\ANTHOXANTHUM ODORATUM POLLEN\DACTYLIS GLOMERATA POLLEN\FESTUCA PRATENSIS PO
     Indication: Conjunctivitis allergic
     Route: 058
  2. STANDARDIZED GRASS POLLEN, GRASS MIX 7 [Suspect]
     Active Substance: AGROSTIS GIGANTEA POLLEN\ANTHOXANTHUM ODORATUM POLLEN\DACTYLIS GLOMERATA POLLEN\FESTUCA PRATENSIS PO
     Route: 058
  3. DANDELION [Suspect]
     Active Substance: TARAXACUM OFFICINALE POLLEN
     Indication: Conjunctivitis allergic
     Route: 058
     Dates: start: 202410
  4. DANDELION [Suspect]
     Active Substance: TARAXACUM OFFICINALE POLLEN
     Route: 058
  5. ALFALFA [Suspect]
     Active Substance: ALFALFA
     Indication: Conjunctivitis allergic
     Route: 058
  6. ALFALFA [Suspect]
     Active Substance: ALFALFA
     Route: 058
  7. WHITE MULBERRY [Suspect]
     Active Substance: MORUS ALBA POLLEN
     Indication: Conjunctivitis allergic
     Route: 058
  8. WHITE MULBERRY [Suspect]
     Active Substance: MORUS ALBA POLLEN
     Route: 058
  9. CLARITIN [Concomitant]
     Active Substance: LORATADINE
     Indication: Conjunctivitis allergic
     Dosage: CLARITIN 10MG TAB EVERY MORNING, REPEATING A DOSE AT NIGHT AS NEEDED
     Route: 058
  10. FLONASE [Concomitant]
     Active Substance: FLUTICASONE PROPIONATE
     Indication: Conjunctivitis allergic
     Dosage: FLONASE ALLERGY RELIEF 50MCG/ACTUATION SPRAY SUSPENSION AT 1 SPRAY IN EACH NOSTRIL TWICE DAILY
     Route: 045
  11. SINGULAIR [Concomitant]
     Active Substance: MONTELUKAST SODIUM
     Indication: Conjunctivitis allergic
     Dosage: SINGULAIR (MONTELUKAST) 10MG AT BEDTIME
  12. FEXOFENADINE [Concomitant]
     Active Substance: FEXOFENADINE HYDROCHLORIDE
     Indication: Conjunctivitis allergic
  13. CETIRIZINE [Concomitant]
     Active Substance: CETIRIZINE HYDROCHLORIDE
     Indication: Conjunctivitis allergic

REACTIONS (6)
  - Depressed level of consciousness [Recovered/Resolved]
  - Vomiting [Recovered/Resolved]
  - Chest discomfort [Recovered/Resolved]
  - Anaphylactic reaction [Recovered/Resolved]
  - Dizziness [Recovered/Resolved]
  - Suspected product quality issue [Recovered/Resolved]

NARRATIVE: CASE EVENT DATE: 20250429
